FAERS Safety Report 7092916-5 (Version None)
Quarter: 2010Q4

REPORT INFORMATION
  Report Type: 
  Country: None (occurrence: None)
  Receive Date: 20101110
  Receipt Date: 20101028
  Transmission Date: 20110411
  Serious: Yes (Hospitalization)
  Sender: FDA-Public Use
  Company Number: US-PFIZER INC-2010117286

PATIENT
  Sex: Female
  Weight: 102.04 kg

DRUGS (7)
  1. NEURONTIN [Suspect]
     Indication: ANXIETY
     Dosage: 100 MG, 3X/DAY
     Dates: start: 20100801
  2. NEURONTIN [Suspect]
     Indication: DEPRESSION
     Dosage: 300 MG, 2X/DAY
  3. NEURONTIN [Suspect]
     Dosage: 300MG TWICE DAILY AND 600MG AT BEDTIME
     Route: 048
     Dates: end: 20100911
  4. EFFEXOR XR [Suspect]
     Indication: ANXIETY
     Dosage: 37.5 MG, DAILY
     Route: 048
  5. EFFEXOR XR [Suspect]
     Indication: DEPRESSION
  6. LOPRESSOR [Concomitant]
     Indication: HYPERTENSION
     Dosage: 25 MG, 2X/DAY
  7. KLONOPIN [Concomitant]
     Dosage: 2 MG, UNK

REACTIONS (5)
  - ANXIETY [None]
  - DEPRESSION [None]
  - GAIT DISTURBANCE [None]
  - INSOMNIA [None]
  - TINNITUS [None]
